FAERS Safety Report 21402055 (Version 2)
Quarter: 2022Q4

REPORT INFORMATION
  Report Type: Spontaneous
  Country: US (occurrence: US)
  Receive Date: 20221003
  Receipt Date: 20221115
  Transmission Date: 20230113
  Serious: Yes (Other)
  Sender: FDA-Public Use
  Company Number: US-CIPLA LTD.-2022US05821

PATIENT
  Age: 74 Year
  Sex: Female

DRUGS (1)
  1. WARFARIN [Suspect]
     Active Substance: WARFARIN
     Indication: Product used for unknown indication
     Dosage: UNK
     Route: 065

REACTIONS (5)
  - Neutropenia [Unknown]
  - Treatment noncompliance [Unknown]
  - Calciphylaxis [Recovered/Resolved]
  - Normocytic anaemia [Unknown]
  - Lymphopenia [Unknown]
